FAERS Safety Report 9719199 (Version 3)
Quarter: 2014Q1

REPORT INFORMATION
  Report Type: Spontaneous
  Country: GB (occurrence: GB)
  Receive Date: 20131127
  Receipt Date: 20140328
  Transmission Date: 20141002
  Serious: Yes (Other)
  Sender: FDA-Public Use
  Company Number: PHHY2013GB135903

PATIENT
  Age: 15 Year
  Sex: Female

DRUGS (11)
  1. METHOTREXATE [Suspect]
     Indication: JUVENILE IDIOPATHIC ARTHRITIS
     Dosage: 20 MG
     Route: 048
     Dates: start: 200404, end: 200602
  2. METHOTREXATE [Suspect]
     Dosage: 20 MG
     Route: 058
     Dates: start: 200602
  3. VITAMIN A [Concomitant]
  4. ETANERCEPT [Concomitant]
     Indication: RHEUMATOID ARTHRITIS
     Dosage: 25 MG
     Route: 058
     Dates: start: 2005
  5. ERGOCALCIFEROL [Concomitant]
  6. CREON [Concomitant]
     Indication: CYSTIC FIBROSIS
     Route: 048
  7. INDOMETHACIN [Concomitant]
  8. VITAMINA E//TOCOPHEROL [Concomitant]
  9. VITAMIN D [Concomitant]
  10. FOLIC ACID [Concomitant]
     Route: 065
  11. VITAMIN E [Concomitant]

REACTIONS (1)
  - Menorrhagia [Not Recovered/Not Resolved]
